FAERS Safety Report 8284379-9 (Version None)
Quarter: 2012Q2

REPORT INFORMATION
  Report Type: 
  Country: None (occurrence: None)
  Receive Date: 20120413
  Receipt Date: 20120119
  Transmission Date: 20120825
  Serious: No
  Sender: FDA-Public Use
  Company Number: US-ASTRAZENECA-2011SE53949

PATIENT
  Age: 56 Year
  Sex: Female

DRUGS (2)
  1. NEXIUM [Suspect]
     Route: 048
  2. PRILOSEC OTC [Suspect]
     Route: 048

REACTIONS (9)
  - REGURGITATION [None]
  - MALAISE [None]
  - GASTRITIS [None]
  - DIVERTICULITIS [None]
  - HIATUS HERNIA [None]
  - DRUG DOSE OMISSION [None]
  - APHAGIA [None]
  - GASTROOESOPHAGEAL REFLUX DISEASE [None]
  - DRUG INEFFECTIVE [None]
